FAERS Safety Report 6114834-9 (Version None)
Quarter: 2009Q1

REPORT INFORMATION
  Report Type: 
  Country: None (occurrence: None)
  Receive Date: 20090313
  Receipt Date: 20090305
  Transmission Date: 20090719
  Serious: Yes (Hospitalization)
  Sender: FDA-Public Use
  Company Number: FR-PFIZER INC-2009180262

PATIENT

DRUGS (16)
  1. TRIFLUCAN [Suspect]
     Dosage: 100 MG, 1X/DAY
     Route: 048
     Dates: start: 20080624, end: 20080704
  2. XANAX [Suspect]
     Indication: ANXIETY
     Dosage: 0.75 MG, 1X/DAY
     Route: 048
     Dates: end: 20080701
  3. VISIPAQUE [Suspect]
     Dosage: 150 MG/ML, 1X/DAY
     Route: 042
     Dates: start: 20080630, end: 20080630
  4. AUGMENTIN [Suspect]
     Indication: LUNG INFECTION
     Dosage: 1 G, 2X/DAY
     Route: 042
     Dates: start: 20080630, end: 20080630
  5. BRICANYL [Suspect]
     Indication: LUNG INFECTION
     Route: 055
     Dates: start: 20080629, end: 20080630
  6. FLUIMUCIL [Suspect]
     Indication: LUNG INFECTION
     Route: 048
     Dates: start: 20080629, end: 20080630
  7. OROKEN [Suspect]
     Dosage: 200 MG, 2X/DAY
     Route: 048
     Dates: start: 20080621, end: 20080624
  8. PRIMPERAN [Suspect]
     Indication: NAUSEA
     Dosage: UNK
     Route: 042
     Dates: start: 20080627, end: 20080704
  9. PARACETAMOL [Suspect]
     Indication: PAIN
     Dosage: UNK
     Route: 042
     Dates: start: 20080620, end: 20080704
  10. LOVENOX [Suspect]
     Indication: PROPHYLAXIS
     Dosage: UNK
     Route: 058
     Dates: start: 20080622, end: 20080708
  11. STILNOX [Suspect]
     Indication: INSOMNIA
     Dosage: 1 DF, 1X/DAY
     Route: 048
     Dates: start: 20080623, end: 20080704
  12. LEXOMIL [Concomitant]
     Dates: start: 20080621
  13. TAREG [Concomitant]
  14. DEROXAT [Concomitant]
  15. NICARDIPINE HCL [Concomitant]
  16. CARBOPLATIN [Concomitant]
     Indication: METASTATIC MALIGNANT MELANOMA

REACTIONS (1)
  - RASH MACULO-PAPULAR [None]
